FAERS Safety Report 6516030-X (Version None)
Quarter: 2009Q4

REPORT INFORMATION
  Report Type: 
  Country: None (occurrence: None)
  Receive Date: 20091223
  Receipt Date: 20090612
  Transmission Date: 20100525
  Serious: No
  Sender: FDA-Public Use
  Company Number: US-ABBOTT-09P-163-0576781-00

PATIENT

DRUGS (1)
  1. LUPRON DEPOT [Suspect]
     Indication: DRUG USE FOR UNKNOWN INDICATION
     Route: 050
     Dates: start: 20090518

REACTIONS (2)
  - DEVICE MALFUNCTION [None]
  - INCORRECT DOSE ADMINISTERED [None]
